FAERS Safety Report 13745877 (Version 3)
Quarter: 2017Q3

REPORT INFORMATION
  Report Type: Spontaneous
  Country: US (occurrence: US)
  Receive Date: 20170712
  Receipt Date: 20170809
  Transmission Date: 20171127
  Serious: No
  Sender: FDA-Public Use
  Company Number: US-GLAXOSMITHKLINE-US2017GSK107026

PATIENT
  Age: 70 Year
  Sex: Female
  Weight: 95.24 kg

DRUGS (1)
  1. NUCALA [Suspect]
     Active Substance: MEPOLIZUMAB
     Indication: PRODUCT USED FOR UNKNOWN INDICATION
     Dosage: UNK, CYC
     Route: 058
     Dates: start: 20170519, end: 20170616

REACTIONS (4)
  - Serum sickness [Unknown]
  - Myalgia [Unknown]
  - Swelling face [Unknown]
  - Pyrexia [Unknown]

NARRATIVE: CASE EVENT DATE: 201705
